FAERS Safety Report 9494860 (Version 2)
Quarter: 2013Q4

REPORT INFORMATION
  Report Type: Spontaneous
  Country: FR (occurrence: FR)
  Receive Date: 20130903
  Receipt Date: 20131022
  Transmission Date: 20140711
  Serious: Yes (Hospitalization, Other)
  Sender: FDA-Public Use
  Company Number: FR-BAYER-2013-105409

PATIENT
  Age: 82 Year
  Sex: Female

DRUGS (2)
  1. REGORAFENIB [Suspect]
     Indication: RECTAL CANCER METASTATIC
     Dosage: 40 MG, QD
     Route: 048
     Dates: start: 20130608, end: 20130620
  2. PROZAC [Concomitant]
     Route: 048

REACTIONS (11)
  - Nausea [Recovered/Resolved]
  - Dyspnoea [Recovered/Resolved]
  - Erythema [Recovered/Resolved]
  - Dysphonia [Recovered/Resolved]
  - Tremor [Recovered/Resolved]
  - Musculoskeletal stiffness [Recovered/Resolved]
  - Dry mouth [Recovered/Resolved]
  - Trismus [Recovered/Resolved]
  - Thrombocytopenia [Recovered/Resolved]
  - Decreased appetite [Recovering/Resolving]
  - Renal failure acute [Recovered/Resolved]
